FAERS Safety Report 5832258-6 (Version None)
Quarter: 2008Q3

REPORT INFORMATION
  Report Type: 
  Country: None (occurrence: None)
  Receive Date: 20080804
  Receipt Date: 20080801
  Transmission Date: 20090109
  Serious: Yes (Other)
  Sender: FDA-Public Use
  Company Number: A0740671A

PATIENT
  Age: 38 Year
  Sex: Female
  Weight: 83 kg

DRUGS (1)
  1. ALLI [Suspect]
     Route: 048
     Dates: start: 20080601

REACTIONS (3)
  - BREAST CANCER [None]
  - BREAST MASS [None]
  - RECTAL DISCHARGE [None]
